FAERS Safety Report 24063699 (Version 1)
Quarter: 2024Q3

REPORT INFORMATION
  Report Type: Spontaneous
  Country: US (occurrence: US)
  Receive Date: 20240709
  Receipt Date: 20240709
  Transmission Date: 20241017
  Serious: No
  Sender: SANOFI AVENTIS
  Company Number: US-SA-SAC20240701000562

PATIENT
  Age: 18 Year
  Sex: Female
  Weight: 52.1 kg

DRUGS (3)
  1. DUPIXENT [Suspect]
     Active Substance: DUPILUMAB
     Dosage: 300 MG QOW
     Route: 058
  2. ZINC [Concomitant]
     Active Substance: ZINC
     Dosage: UNK
  3. HYDROXYZINE HYDROCHLORIDE [Concomitant]
     Active Substance: HYDROXYZINE HYDROCHLORIDE
     Dosage: UNK

REACTIONS (7)
  - Injection site mass [Recovered/Resolved]
  - Dry skin [Recovering/Resolving]
  - Skin fissures [Recovering/Resolving]
  - Skin exfoliation [Recovering/Resolving]
  - Pruritus [Not Recovered/Not Resolved]
  - Therapeutic response shortened [Unknown]
  - Injection site pain [Recovered/Resolved]
